FAERS Safety Report 13845806 (Version 1)
Quarter: 2017Q3

REPORT INFORMATION
  Report Type: Spontaneous
  Country: US (occurrence: US)
  Receive Date: 20170808
  Receipt Date: 20170808
  Transmission Date: 20171127
  Serious: No
  Sender: FDA-Public Use
  Company Number: US-ROCHE-722136

PATIENT
  Age: 57 Year
  Sex: Female

DRUGS (2)
  1. TAGAMET [Concomitant]
     Active Substance: CIMETIDINE
     Dosage: AS REQUIRED. FOR YEARS
     Route: 065
  2. BONIVA [Suspect]
     Active Substance: IBANDRONATE SODIUM
     Indication: OSTEOPENIA
     Route: 048

REACTIONS (2)
  - Chest discomfort [Recovered/Resolved]
  - Hypoaesthesia [Not Recovered/Not Resolved]
